FAERS Safety Report 23860514 (Version 2)
Quarter: 2025Q3

REPORT INFORMATION
  Report Type: Report from Study
  Country: US (occurrence: US)
  Receive Date: 20240516
  Receipt Date: 20250818
  Transmission Date: 20251021
  Serious: Yes (Other)
  Sender: ABBVIE
  Company Number: US-ABBVIE-5759207

PATIENT
  Age: 55 Year
  Sex: Male

DRUGS (2)
  1. HUMIRA [Suspect]
     Active Substance: ADALIMUMAB
     Indication: Uveitis
     Route: 058
     Dates: start: 20200301, end: 20250723
  2. HUMIRA [Suspect]
     Active Substance: ADALIMUMAB
     Route: 058
     Dates: start: 20250813

REACTIONS (14)
  - Blindness [Unknown]
  - Wrong technique in product usage process [Not Recovered/Not Resolved]
  - Skin haemorrhage [Unknown]
  - Swelling [Unknown]
  - Burning sensation [Unknown]
  - Haemorrhage [Unknown]
  - Aggression [Unknown]
  - Skin burning sensation [Not Recovered/Not Resolved]
  - Peripheral swelling [Unknown]
  - Rash [Not Recovered/Not Resolved]
  - Rash papular [Unknown]
  - Bloody discharge [Unknown]
  - Pruritus [Unknown]
  - Pain [Unknown]

NARRATIVE: CASE EVENT DATE: 20240510
